FAERS Safety Report 4566141-3 (Version None)
Quarter: 2005Q1

REPORT INFORMATION
  Report Type: 
  Country: None (occurrence: None)
  Receive Date: 20050110
  Receipt Date: 20050110
  Transmission Date: 20050727
  Serious: No
  Sender: FDA-Public Use
  Company Number: None

PATIENT
  Age: 23 Year
  Sex: Female

DRUGS (1)
  1. TERAZOSIN 10 MG/DAY [Suspect]
     Indication: HYPERTENSION

REACTIONS (1)
  - ABDOMINAL PAIN UPPER [None]
